FAERS Safety Report 9757552 (Version 1)
Quarter: 2013Q4

REPORT INFORMATION
  Report Type: Spontaneous
  Country: FI (occurrence: FI)
  Receive Date: 20131216
  Receipt Date: 20131216
  Transmission Date: 20140711
  Serious: Yes (Other)
  Sender: FDA-Public Use
  Company Number: FI-ROCHE-1317392

PATIENT
  Age: 49 Year
  Sex: Female

DRUGS (4)
  1. AVASTIN [Suspect]
     Indication: MALIGNANT PERITONEAL NEOPLASM
     Route: 065
     Dates: start: 20130125, end: 20131018
  2. DOCETAXEL [Concomitant]
     Indication: MALIGNANT PERITONEAL NEOPLASM
  3. CARBOPLATIN [Concomitant]
     Indication: MALIGNANT PERITONEAL NEOPLASM
  4. CISPLATIN [Concomitant]
     Indication: MALIGNANT PERITONEAL NEOPLASM

REACTIONS (2)
  - Gastrointestinal disorder [Recovering/Resolving]
  - Functional gastrointestinal disorder [Recovering/Resolving]
